FAERS Safety Report 9369022 (Version 2)
Quarter: 2013Q3

REPORT INFORMATION
  Report Type: Spontaneous
  Country: JP (occurrence: JP)
  Receive Date: 20130626
  Receipt Date: 20130718
  Transmission Date: 20140515
  Serious: Yes (Hospitalization)
  Sender: FDA-Public Use
  Company Number: PHHY2013JP064580

PATIENT
  Age: 73 Year
  Sex: Male
  Weight: 54 kg

DRUGS (5)
  1. ONBREZ [Suspect]
     Indication: CHRONIC OBSTRUCTIVE PULMONARY DISEASE
     Dosage: 150 UG, UNK
     Dates: start: 20130222, end: 20130321
  2. ONBREZ [Suspect]
     Dosage: 150 UG, UNK
     Dates: start: 20130425
  3. SPIRIVA [Concomitant]
     Indication: CHRONIC OBSTRUCTIVE PULMONARY DISEASE
     Dosage: 25 UG, UNK
     Dates: start: 20110721
  4. ANTIBIOTICS [Concomitant]
     Indication: DENTAL CARE
     Route: 048
  5. ANALGESICS [Concomitant]
     Indication: DENTAL CARE
     Route: 048

REACTIONS (2)
  - Dermatitis exfoliative [Recovering/Resolving]
  - Eczema [Recovering/Resolving]
